FAERS Safety Report 6013654-3 (Version None)
Quarter: 2008Q4

REPORT INFORMATION
  Report Type: 
  Country: None (occurrence: None)
  Receive Date: 20081219
  Receipt Date: 20081209
  Transmission Date: 20090506
  Serious: Yes (Death, Other)
  Sender: FDA-Public Use
  Company Number: CN-ROCHE-602289

PATIENT
  Age: 50 Year
  Sex: Female

DRUGS (4)
  1. ROCEPHIN [Suspect]
     Indication: TUBERCULOSIS OF CENTRAL NERVOUS SYSTEM
     Route: 065
  2. CELLCEPT [Suspect]
     Indication: RENAL TRANSPLANT
     Route: 048
     Dates: start: 19980101
  3. CYCLOSPORINE [Concomitant]
     Indication: RENAL TRANSPLANT
     Route: 048
     Dates: start: 19980101
  4. PREDNISONE TAB [Concomitant]
     Indication: RENAL TRANSPLANT
     Route: 048
     Dates: start: 19980101

REACTIONS (5)
  - ENCEPHALITIS VIRAL [None]
  - HERPES ZOSTER [None]
  - LUNG INFECTION [None]
  - TUBERCULOSIS OF CENTRAL NERVOUS SYSTEM [None]
  - TUBERCULOUS PLEURISY [None]
